FAERS Safety Report 13876006 (Version 1)
Quarter: 2017Q3

REPORT INFORMATION
  Report Type: Spontaneous
  Country: BR (occurrence: BR)
  Receive Date: 20170817
  Receipt Date: 20170817
  Transmission Date: 20171127
  Serious: Yes (Hospitalization)
  Sender: FDA-Public Use
  Company Number: BR-ROCHE-1975017

PATIENT
  Sex: Female

DRUGS (6)
  1. STILNOX [Concomitant]
     Active Substance: ZOLPIDEM TARTRATE
  2. RIVOTRIL [Suspect]
     Active Substance: CLONAZEPAM
     Indication: PRODUCT USED FOR UNKNOWN INDICATION
     Route: 065
  3. SEROQUEL [Concomitant]
     Active Substance: QUETIAPINE FUMARATE
  4. TRAMAL [Concomitant]
     Active Substance: TRAMADOL
     Route: 065
  5. LYRICA [Suspect]
     Active Substance: PREGABALIN
     Indication: PAIN
     Dosage: AT NIGHT?150 MG X 28 CAPSULES
     Route: 065
  6. CYMBALTA [Concomitant]
     Active Substance: DULOXETINE HYDROCHLORIDE

REACTIONS (5)
  - Intellectual disability [Unknown]
  - Suicide attempt [Unknown]
  - Memory impairment [Not Recovered/Not Resolved]
  - Hypersomnia [Unknown]
  - Pain [Not Recovered/Not Resolved]

NARRATIVE: CASE EVENT DATE: 2014
